FAERS Safety Report 12142611 (Version 7)
Quarter: 2016Q2

REPORT INFORMATION
  Report Type: Spontaneous
  Country: US (occurrence: US)
  Receive Date: 20160303
  Receipt Date: 20160620
  Transmission Date: 20160815
  Serious: Yes (Hospitalization, Other)
  Sender: FDA-Public Use
  Company Number: US-PFIZER INC-2016127490

PATIENT
  Age: 54 Year
  Sex: Female
  Weight: 59 kg

DRUGS (10)
  1. VOLTAREN [Concomitant]
     Active Substance: DICLOFENAC SODIUM
     Indication: PAIN
     Dosage: MINIMAL APPLICATION
     Dates: start: 2015
  2. NUCYNTA [Concomitant]
     Active Substance: TAPENTADOL HYDROCHLORIDE
     Indication: PAIN
     Dosage: 75MG PILL THREE TIMES DAILY
  3. LYRICA [Suspect]
     Active Substance: PREGABALIN
     Indication: NEUROPATHY PERIPHERAL
  4. KLONOPIN [Concomitant]
     Active Substance: CLONAZEPAM
     Indication: PANIC ATTACK
  5. KLONOPIN [Concomitant]
     Active Substance: CLONAZEPAM
     Indication: ANXIETY
  6. KLONOPIN [Concomitant]
     Active Substance: CLONAZEPAM
     Indication: BIPOLAR DISORDER
     Dosage: 1MG TABLET, TWO TABLETS THREE TIMES DAILY
  7. CYMBALTA [Concomitant]
     Active Substance: DULOXETINE HYDROCHLORIDE
     Indication: DEPRESSION
  8. LYRICA [Suspect]
     Active Substance: PREGABALIN
     Indication: NERVE INJURY
     Dosage: 200 MG, 3X/DAY
     Route: 048
     Dates: start: 2011, end: 201601
  9. LYRICA [Suspect]
     Active Substance: PREGABALIN
     Indication: POLYNEUROPATHY
  10. CYMBALTA [Concomitant]
     Active Substance: DULOXETINE HYDROCHLORIDE
     Indication: PAIN
     Dosage: 60MG PILL ONCE DAILY

REACTIONS (13)
  - Renal failure [Unknown]
  - Weight decreased [Not Recovered/Not Resolved]
  - Skin disorder [Recovered/Resolved]
  - Infection parasitic [Recovered/Resolved]
  - Memory impairment [Unknown]
  - Loss of consciousness [Unknown]
  - Road traffic accident [Unknown]
  - Decreased appetite [Unknown]
  - Stress [Unknown]
  - Ligament sprain [Unknown]
  - Urinary tract infection [Unknown]
  - Pain [Unknown]
  - Sepsis [Unknown]

NARRATIVE: CASE EVENT DATE: 2015
